FAERS Safety Report 21361329 (Version 1)
Quarter: 2022Q3

REPORT INFORMATION
  Report Type: Spontaneous
  Country: NI (occurrence: NI)
  Receive Date: 20220921
  Receipt Date: 20220921
  Transmission Date: 20221027
  Serious: Yes (Death)
  Sender: FDA-Public Use
  Company Number: NI-SA-SAC20220920001436

PATIENT
  Age: 3 Year
  Sex: Male

DRUGS (1)
  1. IMIGLUCERASE [Suspect]
     Active Substance: IMIGLUCERASE
     Indication: Gaucher^s disease
     Dosage: 60 IU/KG
     Dates: start: 202207

REACTIONS (3)
  - Gastrooesophageal reflux disease [Fatal]
  - Dehydration [Fatal]
  - Vomiting [Fatal]
